FAERS Safety Report 20990702 (Version 3)
Quarter: 2022Q3

REPORT INFORMATION
  Report Type: Spontaneous
  Country: PR (occurrence: US)
  Receive Date: 20220622
  Receipt Date: 20220726
  Transmission Date: 20221026
  Serious: Yes (Other)
  Sender: FDA-Public Use
  Company Number: PR-JNJFOC-20220630327

PATIENT
  Age: 60 Year
  Sex: Female

DRUGS (34)
  1. ELMIRON [Suspect]
     Active Substance: PENTOSAN POLYSULFATE SODIUM
     Indication: Cystitis interstitial
     Route: 048
     Dates: start: 201201, end: 201312
  2. TRAMADOL [Concomitant]
     Active Substance: TRAMADOL
     Indication: Pain management
     Dates: start: 201412, end: 201509
  3. PRAVASTATIN [Concomitant]
     Active Substance: PRAVASTATIN
     Indication: Blood cholesterol decreased
     Dates: start: 201401, end: 201404
  4. CIPROFLOXACIN [Concomitant]
     Active Substance: CIPROFLOXACIN
     Indication: Infection
     Dates: start: 201404, end: 201409
  5. VITAMIN B12 [Concomitant]
     Active Substance: CYANOCOBALAMIN
     Indication: Vitamin supplementation
     Dates: start: 201405, end: 201406
  6. ACETAMINOPHEN\CODEINE PHOSPHATE [Concomitant]
     Active Substance: ACETAMINOPHEN\CODEINE PHOSPHATE
     Indication: Analgesic therapy
     Dates: start: 201401, end: 201509
  7. ALENDRONATE [Concomitant]
     Active Substance: ALENDRONATE SODIUM
     Indication: Bone loss
     Dates: start: 201402, end: 201404
  8. GABAPENTIN [Concomitant]
     Active Substance: GABAPENTIN
     Indication: Pain management
     Dates: start: 201403, end: 202103
  9. LOSARTAN [Concomitant]
     Active Substance: LOSARTAN
     Indication: Hypertension
     Dates: start: 201403, end: 201509
  10. METFORMIN [Concomitant]
     Active Substance: METFORMIN HYDROCHLORIDE
     Indication: Diabetes mellitus
     Dates: start: 201401, end: 201404
  11. METFORMIN [Concomitant]
     Active Substance: METFORMIN HYDROCHLORIDE
     Dates: start: 201412, end: 202103
  12. PRIMIDONE [Concomitant]
     Active Substance: PRIMIDONE
     Indication: Seizure
     Dates: start: 201307, end: 201405
  13. IBUPROFEN [Concomitant]
     Active Substance: IBUPROFEN
     Indication: Analgesic therapy
     Dates: start: 201401, end: 201509
  14. FOLIC ACID [Concomitant]
     Active Substance: FOLIC ACID
     Indication: Vitamin supplementation
     Dates: start: 201402, end: 201409
  15. LACTULOSE [Concomitant]
     Active Substance: LACTULOSE
     Indication: Laxative supportive care
     Dates: start: 201402, end: 201404
  16. DICLOFENAC [Concomitant]
     Active Substance: DICLOFENAC
     Indication: Pain management
     Dates: start: 201404, end: 201405
  17. OMEPRAZOLE [Concomitant]
     Active Substance: OMEPRAZOLE
     Indication: Gastrooesophageal reflux disease
     Dates: start: 201412, end: 202103
  18. FUROSEMIDE [Concomitant]
     Active Substance: FUROSEMIDE
     Indication: Fluid retention
     Dates: start: 201402, end: 201403
  19. LORATADINE [Concomitant]
     Active Substance: LORATADINE
     Indication: Multiple allergies
     Dates: start: 201312, end: 201401
  20. LORATADINE [Concomitant]
     Active Substance: LORATADINE
     Dates: start: 201403, end: 201809
  21. MONTELUKAST [Concomitant]
     Active Substance: MONTELUKAST SODIUM
     Indication: Wheezing
     Dates: start: 201312, end: 201401
  22. MONTELUKAST [Concomitant]
     Active Substance: MONTELUKAST SODIUM
     Indication: Dyspnoea
  23. GENERLAC [Concomitant]
     Active Substance: LACTULOSE
     Indication: Prophylaxis
     Dates: start: 201402, end: 201403
  24. ASPIRIN [Concomitant]
     Active Substance: ASPIRIN
     Indication: Pain management
     Dates: start: 201403, end: 202103
  25. LATANOPROST [Concomitant]
     Active Substance: LATANOPROST
     Indication: Intraocular pressure increased
     Dates: start: 201403, end: 201405
  26. PREDNISOLONE ACETATE [Concomitant]
     Active Substance: PREDNISOLONE ACETATE
     Indication: Eye irritation
     Dates: start: 201404, end: 201509
  27. LUMIGAN [Concomitant]
     Active Substance: BIMATOPROST
     Indication: Intraocular pressure increased
     Dates: start: 201412, end: 202103
  28. ALPHAGAN P [Concomitant]
     Active Substance: BRIMONIDINE TARTRATE
     Indication: Intraocular pressure increased
  29. TRUSOPT [Concomitant]
     Active Substance: DORZOLAMIDE HYDROCHLORIDE
     Indication: Intraocular pressure increased
     Dates: start: 201406, end: 201509
  30. ALPRAZOLAM [Concomitant]
     Active Substance: ALPRAZOLAM
     Indication: Anxiety
     Dates: start: 201403, end: 201509
  31. BIMATOPROST [Concomitant]
     Active Substance: BIMATOPROST
     Indication: Intraocular pressure increased
     Dates: start: 201403, end: 201509
  32. CARDIZEM [Concomitant]
     Active Substance: DILTIAZEM HYDROCHLORIDE
     Indication: Pain management
     Dates: start: 201403, end: 201509
  33. CYANOCOBALAMIN [Concomitant]
     Active Substance: CYANOCOBALAMIN
     Indication: Hypovitaminosis
     Dates: start: 201403, end: 201509
  34. LASIX [Concomitant]
     Active Substance: FUROSEMIDE
     Indication: Fluid retention
     Dates: start: 201403, end: 201509

REACTIONS (2)
  - Neovascular age-related macular degeneration [Not Recovered/Not Resolved]
  - Off label use [Unknown]

NARRATIVE: CASE EVENT DATE: 20120101
